FAERS Safety Report 9298593 (Version 1)
Quarter: 2013Q2

REPORT INFORMATION
  Report Type: Spontaneous
  Country: CA (occurrence: CA)
  Receive Date: 20130520
  Receipt Date: 20130520
  Transmission Date: 20140414
  Serious: Yes (Life-Threatening)
  Sender: FDA-Public Use
  Company Number: CA-ASTRAZENECA-2013SE34586

PATIENT
  Age: 77 Year
  Sex: Female

DRUGS (5)
  1. QUETIAPINE [Suspect]
     Route: 048
  2. HYDROCHLOROTHIAZIDE [Suspect]
  3. CITALOPRAM [Suspect]
  4. AMITRIPTYLINE [Suspect]
  5. FUROSEMIDE [Suspect]

REACTIONS (2)
  - Electrocardiogram QT prolonged [Unknown]
  - Torsade de pointes [Unknown]
